FAERS Safety Report 20769768 (Version 9)
Quarter: 2022Q4

REPORT INFORMATION
  Report Type: Spontaneous
  Country: US (occurrence: US)
  Receive Date: 20220429
  Receipt Date: 20221006
  Transmission Date: 20230113
  Serious: No
  Sender: FDA-Public Use
  Company Number: US-NOVARTISTESTPH-NVSC2022US099309

PATIENT
  Sex: Female

DRUGS (2)
  1. KESIMPTA [Suspect]
     Active Substance: OFATUMUMAB
     Indication: Product used for unknown indication
     Dosage: UNK, QMO
     Route: 058
     Dates: start: 202202
  2. IG GAMMA [Concomitant]
     Indication: Product used for unknown indication
     Dosage: UNK (SIXTY MILLIGRAMS COMPRISED OF THREE TWENTY MILLIGRAM INJECTIONS)
     Route: 065

REACTIONS (5)
  - Malaise [Unknown]
  - Injection site discharge [Unknown]
  - Device delivery system issue [Unknown]
  - Incorrect dose administered by device [Unknown]
  - Accidental exposure to product [Unknown]
